FAERS Safety Report 6853109-7 (Version None)
Quarter: 2010Q3

REPORT INFORMATION
  Report Type: 
  Country: None (occurrence: None)
  Receive Date: 20100717
  Receipt Date: 20071130
  Transmission Date: 20110219
  Serious: No
  Sender: FDA-Public Use
  Company Number: US-PFIZER INC-2007103091

PATIENT
  Sex: Female

DRUGS (1)
  1. CHANTIX [Suspect]

REACTIONS (5)
  - DRUG DOSE OMISSION [None]
  - FEELING DRUNK [None]
  - GAIT DISTURBANCE [None]
  - PALPITATIONS [None]
  - SOMNOLENCE [None]
